FAERS Safety Report 10260318 (Version 1)
Quarter: 2014Q2

REPORT INFORMATION
  Report Type: Spontaneous
  Country: US (occurrence: US)
  Receive Date: 20140625
  Receipt Date: 20140625
  Transmission Date: 20141212
  Serious: No
  Sender: FDA-Public Use
  Company Number: US-SA-2014SA066302

PATIENT
  Age: 43 Year
  Sex: Female

DRUGS (9)
  1. AUBAGIO [Suspect]
     Indication: MULTIPLE SCLEROSIS
     Route: 065
     Dates: start: 20140104
  2. CYMBALTA [Concomitant]
     Indication: PAIN
     Route: 048
     Dates: start: 20101209
  3. IBUPROFEN [Concomitant]
     Indication: INFLAMMATION
     Route: 048
     Dates: start: 20080101
  4. MAXALT [Concomitant]
     Indication: HEADACHE
     Dosage: SL
     Dates: start: 20110502
  5. WELLBUTRIN [Concomitant]
     Indication: DEPRESSION
     Route: 048
     Dates: start: 20090908
  6. BUSPAR [Concomitant]
     Route: 048
     Dates: start: 20100513
  7. LUNESTA [Concomitant]
     Indication: SLEEP DISORDER
     Route: 048
     Dates: start: 20121215
  8. PROTONIX [Concomitant]
     Route: 048
     Dates: start: 20100101
  9. GABAPENTIN [Concomitant]
     Indication: PAIN
     Dates: start: 20080101

REACTIONS (1)
  - Alopecia [Unknown]
